FAERS Safety Report 9057021 (Version 2)
Quarter: 2013Q3

REPORT INFORMATION
  Report Type: Report from Study
  Country: US (occurrence: US)
  Receive Date: 20130131
  Receipt Date: 20130829
  Transmission Date: 20140515
  Serious: Yes (Other)
  Sender: FDA-Public Use
  Company Number: US-ABBOTT-12P-163-0992570-00

PATIENT
  Sex: Female
  Weight: 102.15 kg

DRUGS (15)
  1. HUMIRA [Suspect]
     Indication: PSORIASIS
     Dates: start: 200902, end: 200902
  2. HUMIRA [Suspect]
     Dates: start: 200902, end: 201102
  3. STELARA [Suspect]
     Indication: PSORIASIS
     Dates: start: 2012, end: 201202
  4. PREMARIN [Concomitant]
     Indication: HORMONE REPLACEMENT THERAPY
  5. SYNTHROID [Concomitant]
     Indication: HYPOTHYROIDISM
  6. SYNTHROID [Concomitant]
     Indication: THYROID CANCER
  7. DIOVAN [Concomitant]
     Indication: HYPERTENSION
  8. METFORMIN [Concomitant]
     Indication: DIABETES MELLITUS
  9. CELEXA [Concomitant]
     Indication: ANXIETY
  10. VITAMIN D3 [Concomitant]
     Indication: VITAMIN SUPPLEMENTATION
  11. MILK THISTLE [Concomitant]
     Indication: PRODUCT USED FOR UNKNOWN INDICATION
  12. MULTIVITAMIN [Concomitant]
     Indication: VITAMIN SUPPLEMENTATION
  13. RED YEAST RICE [Concomitant]
     Indication: SUPPLEMENTATION THERAPY
  14. MAXALT [Concomitant]
     Indication: MIGRAINE
  15. UNKNOWN TOPICAL CREAMS [Concomitant]
     Indication: PSORIASIS

REACTIONS (5)
  - Bladder prolapse [Recovered/Resolved]
  - Ventricular extrasystoles [Not Recovered/Not Resolved]
  - Drug ineffective [Not Recovered/Not Resolved]
  - Psoriasis [Not Recovered/Not Resolved]
  - Autoantibody positive [Unknown]
